FAERS Safety Report 20879487 (Version 1)
Quarter: 2022Q2

REPORT INFORMATION
  Report Type: Spontaneous
  Country: US (occurrence: US)
  Receive Date: 20220526
  Receipt Date: 20220526
  Transmission Date: 20220721
  Serious: No
  Sender: FDA-Public Use
  Company Number: US-RADIUS HEALTH INC.-2021US004128

PATIENT
  Sex: Female
  Weight: 62 kg

DRUGS (1)
  1. TYMLOS [Suspect]
     Active Substance: ABALOPARATIDE
     Indication: Senile osteoporosis
     Dosage: 80 MCG, DAILY
     Route: 058

REACTIONS (5)
  - Intervertebral disc protrusion [Unknown]
  - Headache [Recovered/Resolved]
  - Bone pain [Unknown]
  - Fatigue [Unknown]
  - Insomnia [Unknown]
